FAERS Safety Report 18434475 (Version 4)
Quarter: 2021Q3

REPORT INFORMATION
  Report Type: Report from Study
  Country: None (occurrence: US)
  Receive Date: 20201028
  Receipt Date: 20210805
  Transmission Date: 20211014
  Serious: Yes (Hospitalization, Other)
  Sender: FDA-Public Use
  Company Number: US-ABBVIE-20K-163-3511637-00

PATIENT
  Sex: Male

DRUGS (3)
  1. HUMIRA [Suspect]
     Active Substance: ADALIMUMAB
     Dosage: DAY 15
     Route: 058
     Dates: start: 20200831, end: 20200831
  2. HUMIRA [Suspect]
     Active Substance: ADALIMUMAB
     Indication: CROHN^S DISEASE
     Dosage: DAY 1
     Route: 058
     Dates: start: 20200817, end: 20200817
  3. HUMIRA [Suspect]
     Active Substance: ADALIMUMAB
     Indication: CROHN^S DISEASE
     Route: 058
     Dates: start: 202010

REACTIONS (16)
  - Gastrointestinal infection [Unknown]
  - Decreased appetite [Unknown]
  - Constipation [Unknown]
  - Abdominal pain [Recovering/Resolving]
  - Enteritis [Not Recovered/Not Resolved]
  - Malaise [Unknown]
  - Chills [Unknown]
  - Hyperhidrosis [Unknown]
  - Nausea [Unknown]
  - Pyrexia [Unknown]
  - Rectal haemorrhage [Unknown]
  - Vomiting [Unknown]
  - Inguinal hernia [Unknown]
  - Weight decreased [Unknown]
  - Nasal congestion [Unknown]
  - Diarrhoea [Unknown]

NARRATIVE: CASE EVENT DATE: 2020
